FAERS Safety Report 9376380 (Version 1)
Quarter: 2013Q3

REPORT INFORMATION
  Report Type: Report from Study
  Country: US (occurrence: US)
  Receive Date: 20130701
  Receipt Date: 20130701
  Transmission Date: 20140515
  Serious: Yes (Other)
  Sender: FDA-Public Use
  Company Number: US-ROCHE-1242963

PATIENT
  Age: 51 Year
  Sex: Female
  Weight: 95 kg

DRUGS (5)
  1. TRASTUZUMAB [Suspect]
     Indication: BREAST CANCER
     Dosage: LOADING DOSE, OVER 90 MIN FOR 1WEEK,  LAST DOSE PRIOR TO SAE ON 10/FEB/2012
     Route: 042
  2. TRASTUZUMAB [Suspect]
     Dosage: MAINTANCE DOSE, OVER 30 MIN FOR REMAINING 11  WEEKS, LAST DOSE PRIOR TO SAE ON 10/FEB/2012
     Route: 042
  3. 5-FLUOROURACIL [Suspect]
     Indication: BREAST CANCER
     Dosage: ON DAY 1, LAST DOSE PRIOR TO SAE ON : 07/DEC/2011
     Route: 042
  4. EPIRUBICIN [Suspect]
     Indication: BREAST CANCER
     Dosage: OVER 15 MIN ON DAY1, LAST DOSE PRIOR TO SAE ON :07/DEC/2011
     Route: 042
  5. CYCLOPHOSPHAMIDE [Suspect]
     Indication: BREAST CANCER
     Dosage: OVER 30 MIN ON DAY 1, LAST DOSE PRIOR TO SAE:07/DEC/2011
     Route: 042

REACTIONS (1)
  - Non-cardiac chest pain [Recovered/Resolved]
